FAERS Safety Report 6380747-0 (Version None)
Quarter: 2009Q3

REPORT INFORMATION
  Report Type: 
  Country: None (occurrence: None)
  Receive Date: 20090929
  Receipt Date: 20090924
  Transmission Date: 20100115
  Serious: Yes (Hospitalization)
  Sender: FDA-Public Use
  Company Number: JP-ABBOTT-09P-087-0586786-00

PATIENT
  Sex: Male

DRUGS (7)
  1. KALETRA [Suspect]
     Indication: HIV INFECTION
     Dosage: DAILY DOSE: 4 TABLETS
     Route: 048
     Dates: start: 20070319
  2. RISPERIDONE [Suspect]
     Indication: ALCOHOLIC PSYCHOSIS
     Dates: start: 20090202
  3. EMTRICITABINE AND TENOFOVIR DISOPROXIL FUMARATE [Suspect]
     Indication: HIV INFECTION
     Route: 048
     Dates: start: 20070319
  4. BAKTAR [Concomitant]
     Indication: PNEUMOCYSTIS JIROVECI PNEUMONIA
     Route: 048
     Dates: start: 20070220, end: 20080817
  5. BROTIZOLAM [Concomitant]
     Indication: INSOMNIA
     Dates: start: 20070910, end: 20090202
  6. VALGANCICLOVIR HCL [Concomitant]
     Indication: CYTOMEGALOVIRUS CHORIORETINITIS
     Dates: start: 20070219, end: 20080818
  7. AZITHROMYCIN [Concomitant]
     Indication: OPPORTUNISTIC INFECTION PROPHYLAXIS
     Dates: start: 20070206, end: 20080818

REACTIONS (8)
  - ALCOHOL ABUSE [None]
  - ANOGENITAL WARTS [None]
  - CONSTIPATION [None]
  - DEPRESSION [None]
  - HYPERACUSIS [None]
  - HYPOTHYROIDISM [None]
  - ORAL HERPES [None]
  - PSYCHOTIC DISORDER [None]
